FAERS Safety Report 5919148-5 (Version None)
Quarter: 2008Q4

REPORT INFORMATION
  Report Type: 
  Country: None (occurrence: None)
  Receive Date: 20081010
  Receipt Date: 20080929
  Transmission Date: 20090506
  Serious: Yes (Life-Threatening, Other)
  Sender: FDA-Public Use
  Company Number: POMP-1000291

PATIENT
  Age: 52 Year
  Sex: Male
  Weight: 180 kg

DRUGS (1)
  1. MYOZYME [Suspect]
     Indication: GLYCOGEN STORAGE DISEASE TYPE II
     Dosage: 1820 MG, QOW
     Dates: start: 20060522

REACTIONS (2)
  - MENINGIOMA [None]
  - TEMPORAL LOBE EPILEPSY [None]
